FAERS Safety Report 6909616-1 (Version None)
Quarter: 2010Q3

REPORT INFORMATION
  Report Type: 
  Country: None (occurrence: None)
  Receive Date: 20100805
  Receipt Date: 20100628
  Transmission Date: 20110219
  Serious: No
  Sender: FDA-Public Use
  Company Number: US-TYCO HEALTHCARE/MALLINCKRODT-T201001530

PATIENT
  Sex: Female
  Weight: 92.971 kg

DRUGS (8)
  1. FENTANYL CITRATE [Suspect]
     Indication: NEPHROLITHIASIS
     Dosage: 200 UG, TID
     Dates: start: 20100526
  2. MORPHINE SULFATE [Concomitant]
     Indication: PAIN
     Dosage: 100 UNK Q8
     Route: 048
  3. ROXICODONE [Concomitant]
     Indication: BREAKTHROUGH PAIN
     Dosage: 30 MG, PRN
     Route: 048
  4. GABAPENTIN [Concomitant]
     Indication: CONVULSION
     Dosage: 400 MG, TID
     Route: 048
  5. KLONOPIN [Concomitant]
     Indication: CONVULSION
     Dosage: 2 MG, TID
     Route: 048
  6. REGLAN [Concomitant]
     Indication: GASTRIC DISORDER
     Dosage: 10 MG, TID
     Route: 048
  7. LASIX [Concomitant]
     Indication: FLUID RETENTION
     Dosage: 40 MG, BID
  8. NEXIUM [Concomitant]
     Indication: GASTRIC DISORDER
     Dosage: 40 MG, QD

REACTIONS (2)
  - DRUG EFFECT DELAYED [None]
  - OFF LABEL USE [None]
